FAERS Safety Report 16310127 (Version 1)
Quarter: 2019Q2

REPORT INFORMATION
  Report Type: Spontaneous
  Country: US (occurrence: US)
  Receive Date: 20190409
  Receipt Date: 20190409
  Transmission Date: 20190711
  Serious: Yes (Hospitalization)
  Sender: FDA-Public Use
  Company Number: None

PATIENT
  Age: 9 Month
  Sex: Male

DRUGS (4)
  1. REVATIO [Suspect]
     Active Substance: SILDENAFIL CITRATE
     Indication: HYPOPLASTIC LEFT HEART SYNDROME
     Dosage: ?          OTHER ROUTE:VIA G-TUBE??
     Dates: start: 20181208
  2. SYNAGIS [Concomitant]
     Active Substance: PALIVIZUMAB
  3. TRACLEER [Concomitant]
     Active Substance: BOSENTAN
  4. NIZATIDINE. [Concomitant]
     Active Substance: NIZATIDINE

REACTIONS (1)
  - Hospitalisation [None]

NARRATIVE: CASE EVENT DATE: 20190404
